FAERS Safety Report 4620339-4 (Version None)
Quarter: 2005Q1

REPORT INFORMATION
  Report Type: 
  Country: None (occurrence: None)
  Receive Date: 20050324
  Receipt Date: 20050310
  Transmission Date: 20050727
  Serious: Yes (Hospitalization)
  Sender: FDA-Public Use
  Company Number: 2005-0008138

PATIENT
  Age: 35 Year
  Sex: Male

DRUGS (9)
  1. TENOFOVIR DISOPROXIL FUMARATE (TENOFOVIR DISOPROXIL FUMARATE) [Suspect]
     Indication: HIV INFECTION
     Dosage: 300 MG, 1 IN 1 D, ORAL
     Route: 048
     Dates: start: 20020418, end: 20050224
  2. VIDEX [Suspect]
     Indication: HIV INFECTION
     Dosage: 400 MG, 1 IN 1 D, ORAL
     Route: 048
     Dates: start: 20020418, end: 20050224
  3. KALETRA [Suspect]
     Indication: HIV INFECTION
     Dosage: 1 IN 1 D, ORAL
     Route: 048
     Dates: start: 20020402, end: 20050224
  4. NORTRIPTYLINE HCL [Concomitant]
  5. ENTEX  PSE (RESPAIRE-SR-1-20) [Concomitant]
  6. BACTRIM [Concomitant]
  7. AVELOX [Concomitant]
  8. DIFLUCAN [Concomitant]
  9. PHENERGAN (PROMETHAZINE HDYROCHLORIDE) [Concomitant]

REACTIONS (16)
  - ALANINE AMINOTRANSFERASE INCREASED [None]
  - ASPARTATE AMINOTRANSFERASE INCREASED [None]
  - BLOOD ALKALINE PHOSPHATASE INCREASED [None]
  - BLOOD BILIRUBIN INCREASED [None]
  - CONSTIPATION [None]
  - DILATATION ATRIAL [None]
  - EATING DISORDER [None]
  - ELECTROCARDIOGRAM QT PROLONGED [None]
  - GALLBLADDER DISORDER [None]
  - GAMMA-GLUTAMYLTRANSFERASE INCREASED [None]
  - LACTIC ACIDOSIS [None]
  - PO2 INCREASED [None]
  - REFUSAL OF TREATMENT BY PATIENT [None]
  - SINUS TACHYCARDIA [None]
  - VOMITING [None]
  - WEIGHT DECREASED [None]
